FAERS Safety Report 14618462 (Version 7)
Quarter: 2018Q2

REPORT INFORMATION
  Report Type: Spontaneous
  Country: DE (occurrence: DE)
  Receive Date: 20180309
  Receipt Date: 20180621
  Transmission Date: 20180711
  Serious: Yes (Disabling)
  Sender: FDA-Public Use
  Company Number: DE-TEVA-2018-DE-863895

PATIENT
  Age: 45 Year
  Sex: Female

DRUGS (2)
  1. MOXIFLOXACIN ABZ 400 MG FILMTABLETTEN [Suspect]
     Active Substance: MOXIFLOXACIN
     Indication: NASOPHARYNGITIS
     Dosage: 400 MILLIGRAM DAILY;
     Route: 048
     Dates: start: 20180123, end: 20180201
  2. DEKRISTOL [Concomitant]
     Active Substance: CHOLECALCIFEROL

REACTIONS (2)
  - Ageusia [Recovered/Resolved]
  - Anosmia [Recovered/Resolved]

NARRATIVE: CASE EVENT DATE: 20180123
